FAERS Safety Report 4504295-5 (Version None)
Quarter: 2004Q4

REPORT INFORMATION
  Report Type: 
  Country: None (occurrence: None)
  Receive Date: 20041118
  Receipt Date: 20040909
  Transmission Date: 20050328
  Serious: Yes (Hospitalization)
  Sender: FDA-Public Use
  Company Number: US-AMGEN-KDL090640

PATIENT
  Age: 75 Year
  Sex: Female
  Weight: 70.4 kg

DRUGS (10)
  1. EPOGEN [Suspect]
     Indication: PRE-EXISTING DISEASE
     Route: 058
     Dates: start: 20020702, end: 20040930
  2. PLAVIX [Concomitant]
  3. IRON [Concomitant]
  4. DIOVAN [Concomitant]
     Dates: start: 20030524
  5. VICODIN [Concomitant]
  6. PROCARDIA [Concomitant]
     Route: 048
  7. FOLIC ACID [Concomitant]
  8. LIPITOR [Concomitant]
  9. SYNTHROID [Concomitant]
  10. LASIX [Concomitant]

REACTIONS (6)
  - CARDIAC FAILURE CONGESTIVE [None]
  - CONDITION AGGRAVATED [None]
  - DIVERTICULITIS [None]
  - HAEMOGLOBIN DECREASED [None]
  - HYPERTENSIVE CRISIS [None]
  - RENAL ARTERY STENOSIS [None]
